FAERS Safety Report 12365354 (Version 1)
Quarter: 2016Q2

REPORT INFORMATION
  Report Type: Spontaneous
  Country: CA (occurrence: CA)
  Receive Date: 20160513
  Receipt Date: 20160513
  Transmission Date: 20160815
  Serious: Yes (Other)
  Sender: FDA-Public Use
  Company Number: CA-PFIZER INC-2016251600

PATIENT
  Sex: Male

DRUGS (1)
  1. ADVIL PEDIATRIC DROPS [Suspect]
     Active Substance: IBUPROFEN

REACTIONS (4)
  - Drug administration error [Unknown]
  - Poor quality drug administered [Unknown]
  - Product quality issue [Unknown]
  - Seizure [Unknown]
